FAERS Safety Report 4636495-8 (Version None)
Quarter: 2005Q2

REPORT INFORMATION
  Report Type: 
  Country: None (occurrence: None)
  Receive Date: 20050414
  Receipt Date: 20050414
  Transmission Date: 20051028
  Serious: No
  Sender: FDA-Public Use
  Company Number: None

PATIENT
  Age: 13 Year
  Sex: Female
  Weight: 66.6788 kg

DRUGS (1)
  1. BUPROPION SR    150MG [Suspect]
     Indication: DEPRESSION
     Dosage: 150MG   DAILY   ORAL
     Route: 048
     Dates: start: 20040701, end: 20041031

REACTIONS (4)
  - AGITATION [None]
  - DEPRESSION [None]
  - DRUG EFFECT DECREASED [None]
  - PHARMACEUTICAL PRODUCT COMPLAINT [None]
